FAERS Safety Report 23241467 (Version 1)
Quarter: 2023Q4

REPORT INFORMATION
  Report Type: Spontaneous
  Country: US (occurrence: US)
  Receive Date: 20231129
  Receipt Date: 20231129
  Transmission Date: 20240109
  Serious: Yes (Other)
  Sender: FDA-Public Use
  Company Number: US-MYLANLABS-2023M1124117

PATIENT
  Age: 62 Year
  Sex: Female

DRUGS (3)
  1. PREDNISONE [Suspect]
     Active Substance: PREDNISONE
     Indication: Hypercalcaemia
     Dosage: 60 MILLIGRAM, QD
     Route: 065
  2. KETOCONAZOLE [Interacting]
     Active Substance: KETOCONAZOLE
     Indication: Hypercalcaemia
     Dosage: UNK
     Route: 065
  3. DENOSUMAB [Suspect]
     Active Substance: DENOSUMAB
     Indication: Hypercalcaemia
     Dosage: 120 MILLIGRAM, QW
     Route: 065

REACTIONS (3)
  - Drug ineffective [Unknown]
  - Drug interaction [Unknown]
  - Off label use [Unknown]
